FAERS Safety Report 5512899-6 (Version None)
Quarter: 2007Q4

REPORT INFORMATION
  Report Type: 
  Country: None (occurrence: None)
  Receive Date: 20071112
  Receipt Date: 20071109
  Transmission Date: 20080405
  Serious: Yes (Hospitalization)
  Sender: FDA-Public Use
  Company Number: B0057562A

PATIENT
  Age: 38 Year
  Sex: Female
  Weight: 54 kg

DRUGS (7)
  1. ONDANSETRON [Suspect]
     Indication: NAUSEA
     Route: 048
     Dates: start: 19980502, end: 19980503
  2. LEVOTHYROXINE SODIUM [Concomitant]
     Indication: HYPOTHYROIDISM
     Dosage: 150MCG PER DAY
     Route: 048
     Dates: start: 19960101
  3. ENALAPRIL MALEATE [Concomitant]
     Indication: HYPERTENSION
     Dosage: 10MG PER DAY
     Route: 048
  4. MESNA [Concomitant]
     Indication: PROPHYLAXIS
     Dosage: 400MG PER DAY
     Route: 048
     Dates: start: 19980501, end: 19980501
  5. DEXAMETHASONE [Concomitant]
     Indication: SYSTEMIC LUPUS ERYTHEMATOSUS
     Dosage: 1MG SINGLE DOSE
     Route: 042
     Dates: start: 19980501, end: 19980501
  6. CYCLOPHOSPHAMIDE [Concomitant]
     Indication: SYSTEMIC LUPUS ERYTHEMATOSUS
     Dosage: 750MG PER DAY
     Route: 042
     Dates: start: 19980501, end: 19980501
  7. BENZTROPINE [Concomitant]
     Indication: SYSTEMIC LUPUS ERYTHEMATOSUS
     Dosage: 1MG SINGLE DOSE
     Route: 042
     Dates: start: 19980501, end: 19980501

REACTIONS (5)
  - ALANINE AMINOTRANSFERASE INCREASED [None]
  - BLOOD BILIRUBIN INCREASED [None]
  - HEPATITIS [None]
  - PROTHROMBIN LEVEL INCREASED [None]
  - RASH [None]
